FAERS Safety Report 18407499 (Version 1)
Quarter: 2020Q4

REPORT INFORMATION
  Report Type: Report from Study
  Country: US (occurrence: US)
  Receive Date: 20201021
  Receipt Date: 20201021
  Transmission Date: 20210114
  Serious: Yes (Other)
  Sender: FDA-Public Use
  Company Number: US-BIOGEN-2020BI00936071

PATIENT
  Sex: Female

DRUGS (1)
  1. TYSABRI [Suspect]
     Active Substance: NATALIZUMAB
     Indication: MULTIPLE SCLEROSIS
     Route: 065
     Dates: start: 20190828, end: 20200210

REACTIONS (9)
  - Crohn^s disease [Not Recovered/Not Resolved]
  - Alopecia [Unknown]
  - Seizure [Recovered/Resolved]
  - Liver disorder [Unknown]
  - Migraine [Unknown]
  - Muscle spasticity [Unknown]
  - Loss of control of legs [Recovered/Resolved]
  - Granuloma annulare [Unknown]
  - Blindness unilateral [Recovered/Resolved]
